FAERS Safety Report 12795428 (Version 1)
Quarter: 2016Q3

REPORT INFORMATION
  Report Type: Not Available
  Country: AU (occurrence: AU)
  Receive Date: 20160929
  Receipt Date: 20160929
  Transmission Date: 20161109
  Serious: Yes (Life-Threatening, Hospitalization)
  Sender: FDA-Public Use
  Company Number: US-AKORN-40081

PATIENT
  Age: 51 Year
  Sex: Female

DRUGS (1)
  1. ERYTHRO-STATIN TOPICAL SOLUTION [Suspect]
     Active Substance: ERYTHROMYCIN

REACTIONS (25)
  - Abdominal pain [None]
  - Dehydration [None]
  - Abdominal tenderness [None]
  - Neutropenia [None]
  - Pyrexia [None]
  - Blood pressure decreased [None]
  - Oedema peripheral [None]
  - Oral herpes [None]
  - Rash maculo-papular [None]
  - Congenital cystic kidney disease [None]
  - Chills [None]
  - Tachycardia [None]
  - Anuria [None]
  - Thrombocytopenia [None]
  - Lethargy [None]
  - Decreased appetite [None]
  - Myalgia [None]
  - Mouth ulceration [None]
  - Disseminated intravascular coagulation [None]
  - Activated partial thromboplastin time [None]
  - Blood fibrinogen decreased [None]
  - White blood cell count increased [None]
  - Hypoalbuminaemia [None]
  - Anaemia [None]
  - International normalised ratio increased [None]
